FAERS Safety Report 5259698-0 (Version None)
Quarter: 2007Q1

REPORT INFORMATION
  Report Type: 
  Country: None (occurrence: None)
  Receive Date: 20070307
  Receipt Date: 20070307
  Transmission Date: 20070707
  Serious: Yes (Other)
  Sender: FDA-Public Use
  Company Number: None

PATIENT
  Age: 47 Year
  Sex: Male
  Weight: 97.5234 kg

DRUGS (6)
  1. SEROQUEL [Suspect]
     Indication: DEPRESSION
     Dosage: 600MG AT NIGHT OTHER
     Route: 050
     Dates: start: 20070207, end: 20070306
  2. CYMBALTA [Concomitant]
  3. ZOLOFT [Concomitant]
  4. LEXAPRO [Concomitant]
  5. WELLBUTRIN [Concomitant]
  6. LAMICTAL [Concomitant]

REACTIONS (5)
  - BLOOD GLUCOSE ABNORMAL [None]
  - CONFUSIONAL STATE [None]
  - DEPRESSION [None]
  - DIZZINESS [None]
  - WEIGHT INCREASED [None]
